FAERS Safety Report 17290963 (Version 2)
Quarter: 2020Q3

REPORT INFORMATION
  Report Type: Spontaneous
  Country: US (occurrence: US)
  Receive Date: 20200121
  Receipt Date: 20200817
  Transmission Date: 20201102
  Serious: Yes (Other)
  Sender: FDA-Public Use
  Company Number: US-BAYER-2019-226625

PATIENT
  Age: 18 Year
  Sex: Female

DRUGS (1)
  1. KYLEENA [Suspect]
     Active Substance: LEVONORGESTREL
     Indication: CONTRACEPTION
     Dosage: 17.5 MCG/24HR, CONT
     Route: 015
     Dates: start: 20190919, end: 20200326

REACTIONS (5)
  - Pregnancy with contraceptive device [Recovered/Resolved]
  - Premature delivery [Recovered/Resolved]
  - Amniotic cavity infection [None]
  - HELLP syndrome [None]
  - Drug ineffective [None]

NARRATIVE: CASE EVENT DATE: 20191022
